FAERS Safety Report 25600102 (Version 1)
Quarter: 2025Q3

REPORT INFORMATION
  Report Type: Spontaneous
  Country: EU (occurrence: EU)
  Receive Date: 20250724
  Receipt Date: 20250724
  Transmission Date: 20251020
  Serious: Yes (Other)
  Sender: ALKEM
  Company Number: EU-ALKEM LABORATORIES LIMITED-DK-ALKEM-2025-07900

PATIENT

DRUGS (6)
  1. CAPECITABINE [Suspect]
     Active Substance: CAPECITABINE
     Indication: Neoplasm malignant
     Dosage: 2000 MILLIGRAM/SQ. METER, BID (IN 14 DAYS FOLLOWED BY 7 DAYS OFF) WITH DRUG INTENSITY OF 100 PERCENT
     Route: 065
  2. CAPECITABINE [Suspect]
     Active Substance: CAPECITABINE
     Route: 065
  3. OXALIPLATIN [Suspect]
     Active Substance: OXALIPLATIN
     Indication: Neoplasm malignant
     Route: 065
  4. DOMPERIDONE [Concomitant]
     Active Substance: DOMPERIDONE
     Indication: Antiemetic supportive care
     Route: 065
  5. ONDANSETRON [Concomitant]
     Active Substance: ONDANSETRON
     Indication: Antiemetic supportive care
     Route: 065
  6. PREDNISOLONE [Concomitant]
     Active Substance: PREDNISOLONE
     Indication: Antiemetic supportive care
     Route: 065

REACTIONS (1)
  - Angina unstable [Unknown]
